FAERS Safety Report 6519709-9 (Version None)
Quarter: 2009Q4

REPORT INFORMATION
  Report Type: 
  Country: None (occurrence: None)
  Receive Date: 20091228
  Receipt Date: 20091216
  Transmission Date: 20100525
  Serious: Yes (Other)
  Sender: FDA-Public Use
  Company Number: US-PFIZER INC-2009240177

PATIENT
  Sex: Male

DRUGS (6)
  1. VIAGRA [Suspect]
     Indication: ERECTILE DYSFUNCTION
     Dosage: UNK
     Route: 048
     Dates: start: 19970101, end: 20041001
  2. NORVASC [Concomitant]
     Dosage: UNK
  3. VERAPAMIL [Concomitant]
     Dosage: UNK
  4. MICRO-K [Concomitant]
     Dosage: 600 MG, 2X/DAY
  5. ASPIRIN [Concomitant]
     Dosage: 81 MG, 1X/DAY
  6. ONE-A-DAY [Concomitant]

REACTIONS (4)
  - BLINDNESS [None]
  - CYANOPSIA [None]
  - EYE INJURY [None]
  - OCULAR VASCULAR DISORDER [None]
